FAERS Safety Report 24263478 (Version 1)
Quarter: 2024Q3

REPORT INFORMATION
  Report Type: Spontaneous
  Country: UM (occurrence: UM)
  Receive Date: 20240829
  Receipt Date: 20240829
  Transmission Date: 20241017
  Serious: Yes (Other)
  Sender: JOHNSON AND JOHNSON
  Company Number: UM-JNJFOC-20240855171

PATIENT
  Sex: Female

DRUGS (1)
  1. PREZISTA [Suspect]
     Active Substance: DARUNAVIR ETHANOLATE
     Indication: HIV infection
     Route: 048

REACTIONS (4)
  - Therapeutic product effect decreased [Unknown]
  - CD4 lymphocytes decreased [Unknown]
  - Lymphadenopathy [Unknown]
  - Dysphagia [Not Recovered/Not Resolved]
